FAERS Safety Report 14176123 (Version 2)
Quarter: 2017Q4

REPORT INFORMATION
  Report Type: Report from Study
  Country: US (occurrence: US)
  Receive Date: 20171109
  Receipt Date: 20171122
  Transmission Date: 20180321
  Serious: Yes (Death, Hospitalization)
  Sender: FDA-Public Use
  Company Number: US-ACTELION-A-NJ2017-159216

PATIENT
  Age: 60 Year
  Sex: Female
  Weight: 77.98 kg

DRUGS (6)
  1. REMODULIN [Concomitant]
     Active Substance: TREPROSTINIL
     Dosage: 20 NG/KG, PER MIN
     Route: 058
     Dates: start: 20170911
  2. TYVASO [Concomitant]
     Active Substance: TREPROSTINIL
  3. SILDENAFIL. [Concomitant]
     Active Substance: SILDENAFIL
  4. ELIQUIS [Concomitant]
     Active Substance: APIXABAN
  5. OPSUMIT [Suspect]
     Active Substance: MACITENTAN
     Indication: PULMONARY HYPERTENSION
     Dosage: 10 MG, QD
     Route: 048
     Dates: start: 200908, end: 20171027
  6. AMLODIPINE [Concomitant]
     Active Substance: AMLODIPINE BESYLATE

REACTIONS (16)
  - Renal impairment [Fatal]
  - Flushing [Unknown]
  - Catheter site pain [Unknown]
  - Pulmonary arterial hypertension [Fatal]
  - Mental status changes [Fatal]
  - Headache [Unknown]
  - Urine output decreased [Fatal]
  - Respiratory failure [Fatal]
  - Malaise [Fatal]
  - Confusional state [Fatal]
  - Pericardial effusion [Unknown]
  - Catheter site erythema [Unknown]
  - Fatigue [Unknown]
  - Disease progression [Fatal]
  - Dyspnoea [Fatal]
  - Nausea [Unknown]

NARRATIVE: CASE EVENT DATE: 20171027
